FAERS Safety Report 16897331 (Version 1)
Quarter: 2019Q4

REPORT INFORMATION
  Report Type: Spontaneous
  Country: US (occurrence: US)
  Receive Date: 20191009
  Receipt Date: 20191009
  Transmission Date: 20200122
  Serious: Yes (Hospitalization)
  Sender: FDA-Public Use
  Company Number: US-MALLINCKRODT-T201906756

PATIENT
  Age: 41 Year
  Sex: Female

DRUGS (3)
  1. TRAMADOL. [Suspect]
     Active Substance: TRAMADOL
     Indication: PAIN
     Dosage: ONE TABLET EVERY 4 HOURS
     Route: 065
  2. PREGABALIN. [Suspect]
     Active Substance: PREGABALIN
     Indication: PRODUCT USED FOR UNKNOWN INDICATION
     Dosage: ONE CAPSULE EVERY 8 HOURS
     Route: 065
  3. HYDROCODONE/ACETAMINOPHEN [Suspect]
     Active Substance: ACETAMINOPHEN\HYDROCODONE
     Indication: PAIN
     Dosage: ONE TABLET, EVERY 6 HOURS
     Route: 065

REACTIONS (4)
  - Drug ineffective [Unknown]
  - Adrenal insufficiency [Recovering/Resolving]
  - Respiratory distress [Recovering/Resolving]
  - Circulatory collapse [Recovering/Resolving]
